FAERS Safety Report 5951051-7 (Version None)
Quarter: 2008Q4

REPORT INFORMATION
  Report Type: 
  Country: None (occurrence: None)
  Receive Date: 20081110
  Receipt Date: 20081023
  Transmission Date: 20090506
  Serious: Yes (Other)
  Sender: FDA-Public Use
  Company Number: 2008-1255

PATIENT
  Age: 58 Year
  Sex: Female

DRUGS (2)
  1. SOMATULINE L.P. 90MG (LANREOTIDE ACETATE) (LANREOTIDE ACETATE) [Suspect]
     Indication: PITUITARY TUMOUR BENIGN
     Dosage: (90 MG,) SUBCUTANEOUS
     Route: 058
     Dates: start: 20050101
  2. LIPANTHYL [Concomitant]

REACTIONS (7)
  - ABDOMINAL PAIN [None]
  - ASTHENIA [None]
  - COLITIS ISCHAEMIC [None]
  - DIARRHOEA [None]
  - HYPERHIDROSIS [None]
  - STEATORRHOEA [None]
  - SYNCOPE [None]
